FAERS Safety Report 7403913-1 (Version None)
Quarter: 2011Q2

REPORT INFORMATION
  Report Type: 
  Country: None (occurrence: None)
  Receive Date: 20110401
  Receipt Date: 20110318
  Transmission Date: 20111010
  Serious: Yes (Hospitalization)
  Sender: FDA-Public Use
  Company Number: 2010003600

PATIENT
  Age: 76 Year
  Sex: Male
  Weight: 74.5 kg

DRUGS (2)
  1. ERLOTINIB (ERLOTINIB) (TABLET) (ERLOTINIB) [Suspect]
     Indication: NON-SMALL CELL LUNG CANCER
     Dosage: 100 MG, QD, ORAL
     Route: 048
     Dates: start: 20100617
  2. PERTUZUMAB [Suspect]
     Indication: NON-SMALL CELL LUNG CANCER
     Dosage: 420 MG, Q21 DAYS, INTRAVENOUS
     Route: 042
     Dates: start: 20100617

REACTIONS (5)
  - PNEUMATOSIS INTESTINALIS [None]
  - ADRENAL INSUFFICIENCY [None]
  - ASTHENIA [None]
  - DEHYDRATION [None]
  - FALL [None]
